FAERS Safety Report 18917381 (Version 6)
Quarter: 2022Q3

REPORT INFORMATION
  Report Type: Report from Study
  Country: BE (occurrence: BE)
  Receive Date: 20210219
  Receipt Date: 20220802
  Transmission Date: 20221027
  Serious: Yes (Hospitalization, Other)
  Sender: FDA-Public Use
  Company Number: BE-BRISTOL-MYERS SQUIBB COMPANY-BMS-2021-014858

PATIENT
  Age: 50 Year
  Sex: Male
  Weight: 79 kg

DRUGS (24)
  1. CISPLATIN [Suspect]
     Active Substance: CISPLATIN
     Indication: Non-small cell lung cancer
     Dosage: PRIOR TO THE EVENT ONSET, THE PATIENT RECEIVED THE MOST RECENT DOSE ON 21-DEC-2020.
     Route: 065
     Dates: start: 20201019, end: 20201221
  2. PEMETREXED DISODIUM [Suspect]
     Active Substance: PEMETREXED DISODIUM
     Indication: Non-small cell lung cancer
     Dosage: PRIOR TO THE EVENT ONSET, THE PATIENT RECEIVED THE MOST RECENT DOSE ON 21-DEC-2020.
     Route: 065
     Dates: start: 20201019, end: 20201221
  3. FOLIC ACID [Concomitant]
     Active Substance: FOLIC ACID
     Indication: Prophylaxis
     Route: 048
     Dates: start: 20201009, end: 20210302
  4. ENOXAPARIN SODIUM [Concomitant]
     Active Substance: ENOXAPARIN SODIUM
     Indication: Prophylaxis
     Route: 058
     Dates: start: 20210118, end: 20210129
  5. ENOXAPARIN SODIUM [Concomitant]
     Active Substance: ENOXAPARIN SODIUM
     Route: 058
     Dates: start: 20210130, end: 20210130
  6. ENOXAPARIN SODIUM [Concomitant]
     Active Substance: ENOXAPARIN SODIUM
     Route: 058
     Dates: start: 20210131, end: 20210302
  7. TRAMADOL HYDROCHLORIDE [Concomitant]
     Active Substance: TRAMADOL HYDROCHLORIDE
     Indication: Product used for unknown indication
     Dosage: TRADONAL RETARD
     Route: 048
     Dates: start: 20210125, end: 20210212
  8. TRAMADOL HYDROCHLORIDE [Concomitant]
     Active Substance: TRAMADOL HYDROCHLORIDE
     Dosage: TRADONAL RETARD
     Route: 048
     Dates: start: 20210127, end: 20210212
  9. TRAMADOL HYDROCHLORIDE [Concomitant]
     Active Substance: TRAMADOL HYDROCHLORIDE
     Dosage: TRADONAL RETARD
     Route: 042
     Dates: start: 20210129, end: 20210203
  10. TRAMADOL HYDROCHLORIDE [Concomitant]
     Active Substance: TRAMADOL HYDROCHLORIDE
     Dosage: TRADONAL RETARD
     Route: 048
     Dates: start: 20210204, end: 20210212
  11. PANTOMED D [Concomitant]
     Indication: Prophylaxis
     Route: 048
     Dates: start: 20210121, end: 20210325
  12. MOVICOL [Concomitant]
     Active Substance: POLYETHYLENE GLYCOL 3350\POTASSIUM CHLORIDE\SODIUM BICARBONATE\SODIUM CHLORIDE
     Indication: Product used for unknown indication
     Dosage: 1 DOSAGE FORM: 1 UNIT NOS
     Route: 048
     Dates: start: 20210124, end: 20210224
  13. DAFALGAN [Concomitant]
     Active Substance: ACETAMINOPHEN
     Indication: Product used for unknown indication
     Route: 048
     Dates: start: 20210122, end: 20210224
  14. OXYGEN [Concomitant]
     Active Substance: OXYGEN
     Indication: Product used for unknown indication
     Dosage: 1 DOSAGE FORM: 1 UNIT NOS
     Route: 055
     Dates: start: 20210128, end: 20210202
  15. ATROVENT [Concomitant]
     Active Substance: IPRATROPIUM BROMIDE
     Indication: Product used for unknown indication
     Dosage: 1 DOSAGE FORM: 8 UNITS NOS
     Route: 055
     Dates: start: 20210130, end: 20210203
  16. PIPERACILLIN AND TAZOBACTAM [Concomitant]
     Active Substance: PIPERACILLIN SODIUM\TAZOBACTAM SODIUM
     Indication: Prophylaxis
     Dosage: 1 DOSAGE FORM: 4 UNITS NOS
     Route: 042
     Dates: start: 20210128, end: 20210202
  17. LITICAN [ALIZAPRIDE] [Concomitant]
     Indication: Prophylaxis
     Route: 042
     Dates: start: 20210129, end: 20210203
  18. ACETAMINOPHEN [Concomitant]
     Active Substance: ACETAMINOPHEN
     Indication: Product used for unknown indication
     Route: 042
     Dates: start: 20210129, end: 20210130
  19. MORPHINE [Concomitant]
     Active Substance: MORPHINE
     Indication: Product used for unknown indication
     Route: 042
     Dates: start: 20210130, end: 20210130
  20. RUPATADINE [Concomitant]
     Active Substance: RUPATADINE
     Indication: Prophylaxis
     Route: 048
     Dates: start: 20210129, end: 20210213
  21. BUPRENORPHINE HYDROCHLORIDE [Concomitant]
     Active Substance: BUPRENORPHINE HYDROCHLORIDE
     Indication: Product used for unknown indication
     Route: 048
     Dates: start: 20210130, end: 20210212
  22. ALPRAZOLAM [Concomitant]
     Active Substance: ALPRAZOLAM
     Indication: Prophylaxis
     Route: 048
     Dates: start: 20210203, end: 20210212
  23. AMOXICILLIN\CLAVULANATE POTASSIUM [Concomitant]
     Active Substance: AMOXICILLIN\CLAVULANATE POTASSIUM
     Indication: Prophylaxis
     Dosage: 875MG PLUS 125MG?1 DOSAGE FORM: 3 UNITS NOS
     Route: 065
     Dates: start: 20210203, end: 20210209
  24. VITAMIN B12 [Concomitant]
     Active Substance: CYANOCOBALAMIN
     Indication: Prophylaxis
     Route: 030
     Dates: start: 20210208, end: 20210208

REACTIONS (1)
  - Cardiac tamponade [Recovered/Resolved]

NARRATIVE: CASE EVENT DATE: 20210212
